FAERS Safety Report 20961810 (Version 1)
Quarter: 2022Q2

REPORT INFORMATION
  Report Type: Other
  Country: CA (occurrence: CA)
  Receive Date: 20220615
  Receipt Date: 20220615
  Transmission Date: 20220720
  Serious: Yes (Other)
  Sender: FDA-Public Use
  Company Number: CA-APOTEX-2021AP044193

PATIENT
  Age: 55 Year
  Sex: Male

DRUGS (1)
  1. VARENICLINE [Suspect]
     Active Substance: VARENICLINE
     Indication: Product used for unknown indication
     Dosage: UNK
     Route: 065

REACTIONS (8)
  - Cardiac disorder [Unknown]
  - Emotional distress [Unknown]
  - Hallucination, auditory [Unknown]
  - Mental disorder [Unknown]
  - Dysarthria [Unknown]
  - Aggression [Unknown]
  - Cerebrovascular accident [Unknown]
  - Somnambulism [Unknown]
